FAERS Safety Report 5046653-9 (Version None)
Quarter: 2006Q3

REPORT INFORMATION
  Report Type: 
  Country: None (occurrence: None)
  Receive Date: 20060707
  Receipt Date: 20060707
  Transmission Date: 20061208
  Serious: Yes (Hospitalization)
  Sender: FDA-Public Use
  Company Number: None

PATIENT
  Age: 64 Year
  Sex: Male
  Weight: 63.5036 kg

DRUGS (8)
  1. REOPRO [Suspect]
     Indication: CORONARY ANGIOPLASTY
     Dosage: IV BOLUS 0.25 MG/KG IV DRIP 0.125 MG/KG/MIN
     Route: 040
     Dates: start: 20060629
  2. REOPRO [Suspect]
     Indication: CORONARY ARTERIAL STENT INSERTION
     Dosage: IV BOLUS 0.25 MG/KG IV DRIP 0.125 MG/KG/MIN
     Route: 040
     Dates: start: 20060629
  3. HEPARIN [Suspect]
     Indication: CORONARY ANGIOPLASTY
     Dosage: 70 UNITS/KG
     Dates: start: 20060629
  4. HEPARIN [Suspect]
     Indication: CORONARY ARTERIAL STENT INSERTION
     Dosage: 70 UNITS/KG
     Dates: start: 20060629
  5. IV CONTRAST MEDIUM (VISIPAQUE) [Concomitant]
  6. MIDOZOLAN [Concomitant]
  7. FENTANYL TRANSDERMAL SYSTEM [Concomitant]
  8. CLOPIDOGREL [Concomitant]

REACTIONS (1)
  - PLATELET COUNT DECREASED [None]
